FAERS Safety Report 11647575 (Version 1)
Quarter: 2015Q4

REPORT INFORMATION
  Report Type: Spontaneous
  Country: FR (occurrence: FR)
  Receive Date: 20151021
  Receipt Date: 20151021
  Transmission Date: 20160304
  Serious: Yes (Hospitalization)
  Sender: FDA-Public Use
  Company Number: FR-ROCHE-1646758

PATIENT
  Age: 62 Year
  Sex: Female
  Weight: 63 kg

DRUGS (9)
  1. LEVOTHYROX [Concomitant]
     Active Substance: LEVOTHYROXINE
     Route: 048
  2. CORTANCYL [Concomitant]
     Active Substance: PREDNISONE
     Route: 048
  3. CEFTRIAXONE. [Concomitant]
     Active Substance: CEFTRIAXONE
     Route: 065
  4. METRONIDAZOLE. [Concomitant]
     Active Substance: METRONIDAZOLE
     Route: 042
  5. REVATIO [Concomitant]
     Active Substance: SILDENAFIL CITRATE
     Route: 048
  6. LASILIX [Concomitant]
     Active Substance: FUROSEMIDE
     Route: 048
  7. DIFFU K [Concomitant]
     Active Substance: POTASSIUM CHLORIDE
     Route: 048
  8. ZOLPIDEM [Concomitant]
     Active Substance: ZOLPIDEM\ZOLPIDEM TARTRATE
     Route: 048
  9. CELLCEPT [Suspect]
     Active Substance: MYCOPHENOLATE MOFETIL\MYCOPHENOLATE MOFETIL HYDROCHLORIDE
     Indication: PRODUCT USED FOR UNKNOWN INDICATION
     Route: 048
     Dates: start: 2013, end: 20150613

REACTIONS (3)
  - Blood creatine phosphokinase increased [Recovering/Resolving]
  - Troponin increased [Recovering/Resolving]
  - Myalgia [Recovering/Resolving]

NARRATIVE: CASE EVENT DATE: 201506
